FAERS Safety Report 13132910 (Version 1)
Quarter: 2017Q1

REPORT INFORMATION
  Report Type: Spontaneous
  Country: US (occurrence: US)
  Receive Date: 20170119
  Receipt Date: 20170119
  Transmission Date: 20170428
  Serious: No
  Sender: FDA-Public Use
  Company Number: None

PATIENT
  Age: 65 Year

DRUGS (1)
  1. PRESTALIA [Suspect]
     Active Substance: AMLODIPINE BESYLATE\PERINDOPRIL ARGININE
     Indication: HYPERTENSION
     Route: 048
     Dates: start: 20160828, end: 20161231

REACTIONS (1)
  - Headache [None]

NARRATIVE: CASE EVENT DATE: 20161220
